FAERS Safety Report 16536249 (Version 1)
Quarter: 2019Q3

REPORT INFORMATION
  Report Type: Spontaneous
  Country: US (occurrence: US)
  Receive Date: 20190705
  Receipt Date: 20190705
  Transmission Date: 20191004
  Serious: Yes (Life-Threatening)
  Sender: FDA-Public Use
  Company Number: US-HLSUS-2019-US-000584

PATIENT
  Age: 53 Year
  Sex: Male

DRUGS (13)
  1. CLOZARIL [Suspect]
     Active Substance: CLOZAPINE
     Dosage: 200 MG, 2 IN 1 DAY
     Route: 048
  2. SILVADENE [Concomitant]
     Active Substance: SILVER SULFADIAZINE
  3. COLACE [Concomitant]
     Active Substance: DOCUSATE SODIUM
     Dosage: 100 MG, 2 IN 1 DAY
     Route: 048
  4. ATORVASTATIN [Concomitant]
     Active Substance: ATORVASTATIN
  5. LIPITOR [Concomitant]
     Active Substance: ATORVASTATIN CALCIUM
     Dosage: 40 MG
  6. MAVYRET [Suspect]
     Active Substance: GLECAPREVIR\PIBRENTASVIR
     Route: 048
     Dates: start: 20180620, end: 20180815
  7. KLONOPIN [Concomitant]
     Active Substance: CLONAZEPAM
     Dosage: 0.5 MG, 3 IN 1 DAY
     Route: 048
  8. CLOZAPINE. [Suspect]
     Active Substance: CLOZAPINE
  9. CLONAZEPAM. [Concomitant]
     Active Substance: CLONAZEPAM
  10. COLACE [Concomitant]
     Active Substance: DOCUSATE SODIUM
  11. ELIMITE [Concomitant]
     Active Substance: PERMETHRIN
  12. SYMMETREL [Concomitant]
     Active Substance: AMANTADINE HYDROCHLORIDE
  13. LATUDA [Concomitant]
     Active Substance: LURASIDONE HYDROCHLORIDE

REACTIONS (4)
  - Dyspepsia [Unknown]
  - Schizophrenia [Unknown]
  - Drug interaction [Unknown]
  - Neutropenia [Unknown]

NARRATIVE: CASE EVENT DATE: 20180823
